FAERS Safety Report 9482699 (Version 2)
Quarter: 2013Q3

REPORT INFORMATION
  Report Type: Report from Study
  Country: CA (occurrence: CA)
  Receive Date: 20130828
  Receipt Date: 20130923
  Transmission Date: 20140515
  Serious: Yes (Other)
  Sender: FDA-Public Use
  Company Number: CA-JNJFOC-20130814310

PATIENT
  Age: 76 Year
  Sex: Male
  Weight: 72.7 kg

DRUGS (6)
  1. REMICADE [Suspect]
     Indication: RHEUMATOID ARTHRITIS
     Route: 042
     Dates: start: 20130818
  2. MTX [Concomitant]
     Route: 048
  3. FOLIC ACID [Concomitant]
     Route: 065
  4. LIPITOR [Concomitant]
     Route: 065
  5. VITAMIN B 12 [Concomitant]
     Route: 065
  6. NEXIUM [Concomitant]
     Route: 065

REACTIONS (2)
  - Aspiration pleural cavity [Unknown]
  - Chest pain [Unknown]
